FAERS Safety Report 8067205-2 (Version None)
Quarter: 2012Q1

REPORT INFORMATION
  Report Type: 
  Country: None (occurrence: None)
  Receive Date: 20120124
  Receipt Date: 20120119
  Transmission Date: 20120608
  Serious: Yes (Death)
  Sender: FDA-Public Use
  Company Number: US-GLAXOSMITHKLINE-A0962466A

PATIENT
  Age: 71 Year
  Sex: Male

DRUGS (4)
  1. INSULIN [Concomitant]
  2. THYROID MEDICATION [Concomitant]
  3. AVANDIA [Suspect]
     Indication: DIABETES MELLITUS
     Route: 048
     Dates: start: 19990101, end: 20010101
  4. HEART MEDICATION [Concomitant]

REACTIONS (15)
  - OEDEMA [None]
  - LEG AMPUTATION [None]
  - PERICARDIAL EFFUSION [None]
  - DYSPNOEA [None]
  - SPEECH DISORDER [None]
  - TREATMENT FAILURE [None]
  - CARDIAC FAILURE [None]
  - WALKING DISABILITY [None]
  - SKIN ULCER [None]
  - FLUID RETENTION [None]
  - LIMB CRUSHING INJURY [None]
  - SKIN DISCOLOURATION [None]
  - FALL [None]
  - BALANCE DISORDER [None]
  - RENAL FAILURE [None]
